FAERS Safety Report 22186207 (Version 2)
Quarter: 2023Q2

REPORT INFORMATION
  Report Type: Report from Study
  Country: US (occurrence: US)
  Receive Date: 20230407
  Receipt Date: 20230419
  Transmission Date: 20230722
  Serious: No
  Sender: FDA-Public Use
  Company Number: US-002147023-NVSC2023US077001

PATIENT
  Sex: Male

DRUGS (1)
  1. ENTRESTO [Suspect]
     Active Substance: SACUBITRIL\VALSARTAN
     Indication: Product used for unknown indication
     Dosage: 2 DOSAGE FORM, BID, 49/51 MG
     Route: 065
     Dates: start: 202201

REACTIONS (5)
  - Chest pain [Unknown]
  - Sleep deficit [Unknown]
  - Dyspnoea [Unknown]
  - Cardiac disorder [Unknown]
  - Drug ineffective [Unknown]
